FAERS Safety Report 10199995 (Version 1)
Quarter: 2014Q2

REPORT INFORMATION
  Report Type: Spontaneous
  Country: US (occurrence: US)
  Receive Date: 20140527
  Receipt Date: 20140527
  Transmission Date: 20141212
  Serious: Yes (Other)
  Sender: FDA-Public Use
  Company Number: US-GE HEALTHCARE MEDICAL DIAGNOSTICS-VISP-PR-1405S-0219

PATIENT
  Age: 38 Year
  Sex: Male

DRUGS (2)
  1. VISIPAQUE [Suspect]
     Indication: PULMONARY EMBOLISM
     Route: 042
     Dates: start: 20140513, end: 20140513
  2. VISIPAQUE [Suspect]
     Indication: DIAGNOSTIC PROCEDURE

REACTIONS (1)
  - Urticaria [Recovered/Resolved]
